FAERS Safety Report 16717510 (Version 1)
Quarter: 2019Q3

REPORT INFORMATION
  Report Type: Spontaneous
  Country: RU (occurrence: RU)
  Receive Date: 20190819
  Receipt Date: 20190819
  Transmission Date: 20191005
  Serious: Yes (Other)
  Sender: FDA-Public Use
  Company Number: RU-SA-2019SA222535

PATIENT
  Age: 52 Year
  Sex: Male

DRUGS (10)
  1. AZATHIOPRINE. [Suspect]
     Active Substance: AZATHIOPRINE
     Indication: PROPHYLAXIS AGAINST TRANSPLANT REJECTION
     Dosage: UNK UNK, UNK
     Route: 065
  2. FLUDARABINE PHOSPHATE. [Concomitant]
     Active Substance: FLUDARABINE PHOSPHATE
     Indication: BONE MARROW CONDITIONING REGIMEN
     Dosage: UNK UNK, UNK
     Route: 065
  3. MYCOPHENOLATE SODIUM [Concomitant]
     Active Substance: MYCOPHENOLATE SODIUM
     Indication: IMMUNOSUPPRESSANT DRUG THERAPY
     Dosage: UNK UNK, UNK
     Route: 065
  4. LEMTRADA [Suspect]
     Active Substance: ALEMTUZUMAB
     Indication: PROPHYLAXIS AGAINST TRANSPLANT REJECTION
     Dosage: UNK UNK, UNK
     Route: 065
  5. RECTODELT [Concomitant]
     Active Substance: PREDNISONE
     Indication: SKIN INFECTION HELMINTHIC
     Dosage: UNK UNK, UNK
     Route: 065
  6. RECTODELT [Concomitant]
     Active Substance: PREDNISONE
     Indication: GRAFT VERSUS HOST DISEASE
  7. TACROLIMUS. [Concomitant]
     Active Substance: TACROLIMUS
     Indication: IMMUNOSUPPRESSANT DRUG THERAPY
     Dosage: UNK UNK, UNK
     Route: 065
  8. MYLERAN [Suspect]
     Active Substance: BUSULFAN
     Indication: PROPHYLAXIS AGAINST TRANSPLANT REJECTION
     Dosage: UNK UNK, UNK
     Route: 065
  9. CYCLOSPORIN [Concomitant]
     Active Substance: CYCLOSPORINE
     Indication: PROPHYLAXIS AGAINST TRANSPLANT REJECTION
     Dosage: UNK UNK, UNK
     Route: 065
  10. IMMUNOGLOBULIN SIGARDIS [Concomitant]
     Indication: HYPOGAMMAGLOBULINAEMIA
     Dosage: UNK UNK, UNK
     Route: 042

REACTIONS (3)
  - Viral infection [Recovering/Resolving]
  - Encephalopathy [Recovering/Resolving]
  - Product use in unapproved indication [Unknown]
